FAERS Safety Report 16792451 (Version 1)
Quarter: 2019Q3

REPORT INFORMATION
  Report Type: Report from Study
  Country: US (occurrence: US)
  Receive Date: 20190910
  Receipt Date: 20190910
  Transmission Date: 20191005
  Serious: Yes (Hospitalization)
  Sender: FDA-Public Use
  Company Number: US-ACTELION-A-NJ2018-171038

PATIENT
  Sex: Female

DRUGS (1)
  1. OPSUMIT [Suspect]
     Active Substance: MACITENTAN
     Indication: PULMONARY ARTERIAL HYPERTENSION
     Dosage: 10 MG, QD
     Route: 048
     Dates: start: 20160512

REACTIONS (6)
  - Blood pressure fluctuation [Unknown]
  - Nervousness [Unknown]
  - Rehabilitation therapy [Unknown]
  - Speech disorder [Not Recovered/Not Resolved]
  - Gait disturbance [Unknown]
  - Hospitalisation [Not Recovered/Not Resolved]
